FAERS Safety Report 5519137-9 (Version None)
Quarter: 2007Q4

REPORT INFORMATION
  Report Type: 
  Country: None (occurrence: None)
  Receive Date: 20071114
  Receipt Date: 20071114
  Transmission Date: 20080405
  Serious: Yes (Life-Threatening, Hospitalization)
  Sender: FDA-Public Use
  Company Number: None

PATIENT
  Age: 63 Year
  Sex: Female
  Weight: 74 kg

DRUGS (2)
  1. SEVOFLURANE [Suspect]
     Dosage: ONCE ENDOTRACHEA
     Route: 007
     Dates: start: 20071105, end: 20071105
  2. PROPOFOL [Suspect]
     Dosage: ONCE IV
     Route: 042
     Dates: start: 20071105, end: 20071105

REACTIONS (3)
  - DEPRESSED LEVEL OF CONSCIOUSNESS [None]
  - HEPATITIS ACUTE [None]
  - HYPOTENSION [None]
